FAERS Safety Report 4615500-9 (Version None)
Quarter: 2005Q1

REPORT INFORMATION
  Report Type: 
  Country: None (occurrence: None)
  Receive Date: 20050317
  Receipt Date: 20050304
  Transmission Date: 20050727
  Serious: Yes (Death, Life-Threatening, Hospitalization)
  Sender: FDA-Public Use
  Company Number: 2004080583

PATIENT
  Age: 88 Year
  Sex: Male
  Weight: 104 kg

DRUGS (8)
  1. GABAPENTIN [Suspect]
     Indication: NEUROPATHIC PAIN
     Dosage: 300 MG (300 MG, 1 IN 1 D), ORAL
     Route: 048
     Dates: start: 20040901, end: 20040101
  2. AMIODARONE HCL [Concomitant]
  3. CARBOCISTEINE (CARBOCISTEINE) [Concomitant]
  4. TIOTROPIUM BROMIDE (TIOTROPIUM BROMIDE) [Concomitant]
  5. CANDESARTAN (CANDESARTAN) [Concomitant]
  6. ALBUTEROL SULFATE HFA [Concomitant]
  7. BECLOMETHASONE DIPROPIONATE [Concomitant]
  8. FUROSEMIDE [Concomitant]

REACTIONS (4)
  - FALL [None]
  - HYPOTENSION [None]
  - RENAL FAILURE ACUTE [None]
  - RESPIRATORY FAILURE [None]
